FAERS Safety Report 9699949 (Version 1)
Quarter: 2013Q4

REPORT INFORMATION
  Report Type: Spontaneous
  Country: US (occurrence: US)
  Receive Date: 20131121
  Receipt Date: 20131121
  Transmission Date: 20140711
  Serious: No
  Sender: FDA-Public Use
  Company Number: US-009507513-1311USA005411

PATIENT
  Sex: Female

DRUGS (2)
  1. AZASITE [Suspect]
     Indication: LACRIMATION INCREASED
     Dosage: 1 DF, BID, ONE DROP IN BOTH EYES TWICE A DAY
     Route: 047
     Dates: start: 201310, end: 201310
  2. AZASITE [Suspect]
     Dosage: 1 DF, QD, ONE DROP IN BOTH EYES ONCE A DAY
     Route: 047
     Dates: start: 201310

REACTIONS (4)
  - Drug ineffective [Recovering/Resolving]
  - Drug dose omission [Unknown]
  - Inappropriate schedule of drug administration [Unknown]
  - Product packaging quantity issue [Unknown]
